FAERS Safety Report 10360094 (Version 3)
Quarter: 2014Q3

REPORT INFORMATION
  Report Type: Spontaneous
  Country: JP (occurrence: JP)
  Receive Date: 20140804
  Receipt Date: 20140829
  Transmission Date: 20150326
  Serious: No
  Sender: FDA-Public Use
  Company Number: JP-ASTELLAS-2014JP013092

PATIENT
  Age: 69 Year
  Sex: Male

DRUGS (12)
  1. XTANDI [Suspect]
     Active Substance: ENZALUTAMIDE
     Route: 048
     Dates: start: 20140610, end: 20140623
  2. DECADRON [Suspect]
     Active Substance: DEXAMETHASONE
     Dosage: 0.5 MG, EVERY OTHER DAY
     Route: 048
     Dates: start: 20140304, end: 20140428
  3. XTANDI [Suspect]
     Active Substance: ENZALUTAMIDE
     Route: 048
     Dates: start: 20140417, end: 20140609
  4. XTANDI [Suspect]
     Active Substance: ENZALUTAMIDE
     Route: 048
     Dates: start: 20140624
  5. LEUPLIN [Concomitant]
     Active Substance: LEUPROLIDE ACETATE
     Indication: PROSTATE CANCER METASTATIC
     Dosage: 11.25 MG, EVERY 12 WEEKS
     Route: 058
     Dates: start: 20110825
  6. XTANDI [Suspect]
     Active Substance: ENZALUTAMIDE
     Route: 048
     Dates: start: 20140326, end: 20140416
  7. DECADRON [Suspect]
     Active Substance: DEXAMETHASONE
     Route: 048
     Dates: start: 20131008, end: 20131009
  8. DECADRON [Suspect]
     Active Substance: DEXAMETHASONE
     Indication: PROSTATE CANCER METASTATIC
     Route: 048
     Dates: start: 20130411, end: 20131007
  9. DECADRON [Suspect]
     Active Substance: DEXAMETHASONE
     Dosage: 0.5 MG, ONCE DAILY
     Route: 048
     Dates: start: 20131010, end: 20140303
  10. XTANDI [Suspect]
     Active Substance: ENZALUTAMIDE
     Indication: PROSTATE CANCER METASTATIC
     Route: 048
     Dates: start: 20140213, end: 20140325
  11. ZOMETA [Concomitant]
     Active Substance: ZOLEDRONIC ACID
     Indication: PROSTATE CANCER METASTATIC
     Route: 042
     Dates: start: 20110309, end: 20140610
  12. LASIX [Concomitant]
     Active Substance: FUROSEMIDE
     Indication: OEDEMA
     Route: 048
     Dates: start: 20140410, end: 20140428

REACTIONS (6)
  - Hepatic function abnormal [Recovered/Resolved]
  - Intentional product misuse [Unknown]
  - Oedema peripheral [Recovered/Resolved]
  - Myalgia [Recovered/Resolved]
  - Muscular weakness [Recovering/Resolving]
  - Fatigue [Recovered/Resolved]

NARRATIVE: CASE EVENT DATE: 20140213
